FAERS Safety Report 8343257-7 (Version None)
Quarter: 2012Q2

REPORT INFORMATION
  Report Type: 
  Country: None (occurrence: None)
  Receive Date: 20120508
  Receipt Date: 20120501
  Transmission Date: 20120825
  Serious: Yes (Other)
  Sender: FDA-Public Use
  Company Number: US-BAYER-2012-043651

PATIENT
  Sex: Female

DRUGS (1)
  1. MIRENA [Suspect]
     Dosage: UNK
     Route: 015
     Dates: start: 20080207, end: 20101004

REACTIONS (7)
  - PROCEDURAL PAIN [None]
  - MENSTRUATION IRREGULAR [None]
  - ABDOMINAL PAIN [None]
  - DEVICE DISLOCATION [None]
  - VAGINAL HAEMORRHAGE [None]
  - WEIGHT INCREASED [None]
  - INJURY [None]
